FAERS Safety Report 7234004-0 (Version None)
Quarter: 2011Q1

REPORT INFORMATION
  Report Type: 
  Country: None (occurrence: None)
  Receive Date: 20110119
  Receipt Date: 20101117
  Transmission Date: 20110831
  Serious: No
  Sender: FDA-Public Use
  Company Number: US-BAYER-2010-006039

PATIENT
  Sex: Female
  Weight: 53 kg

DRUGS (1)
  1. ALEVE (CAPLET) [Suspect]
     Indication: ANALGESIC THERAPY
     Dosage: UNK
     Route: 048
     Dates: start: 20101114

REACTIONS (6)
  - NASAL CONGESTION [None]
  - CHEST DISCOMFORT [None]
  - COUGH [None]
  - RESTLESSNESS [None]
  - BRONCHITIS [None]
  - INSOMNIA [None]
